FAERS Safety Report 10073958 (Version 1)
Quarter: 2014Q2

REPORT INFORMATION
  Report Type: Spontaneous
  Country: US (occurrence: US)
  Receive Date: 20140411
  Receipt Date: 20140411
  Transmission Date: 20141212
  Serious: Yes (Hospitalization)
  Sender: FDA-Public Use
  Company Number: US-GILEAD-2014-0099389

PATIENT
  Age: 73 Year
  Sex: Male

DRUGS (15)
  1. LETAIRIS [Suspect]
     Indication: PULMONARY HYPERTENSION
     Dosage: 5 MG, QD
     Route: 048
     Dates: start: 20140306
  2. ADCIRCA [Concomitant]
  3. ALDACTONE                          /00006201/ [Concomitant]
  4. GLIPIZIDE [Concomitant]
  5. CARVEDILOL [Concomitant]
  6. ASPIRIN LOW [Concomitant]
  7. POTASSIUM [Concomitant]
  8. LASIX                              /00032601/ [Concomitant]
  9. LISINOPRIL [Concomitant]
  10. LYRICA [Concomitant]
  11. PLAVIX [Concomitant]
  12. PRILOSEC                           /00661201/ [Concomitant]
  13. PRIMIDONE [Concomitant]
  14. METOLAZONE [Concomitant]
  15. ZOCOR [Concomitant]

REACTIONS (1)
  - Aortic aneurysm [Not Recovered/Not Resolved]
